FAERS Safety Report 25571503 (Version 1)
Quarter: 2025Q3

REPORT INFORMATION
  Report Type: Spontaneous
  Country: CA (occurrence: CA)
  Receive Date: 20250717
  Receipt Date: 20250717
  Transmission Date: 20251020
  Serious: Yes (Other)
  Sender: AZURITY PHARMACEUTICALS
  Company Number: CA-COVIS PHARMA-AZR202507-001928

PATIENT
  Sex: Female

DRUGS (2)
  1. ALVESCO [Suspect]
     Active Substance: CICLESONIDE
     Indication: Product used for unknown indication
  2. TERBUTALINE [Suspect]
     Active Substance: TERBUTALINE
     Indication: Product used for unknown indication
     Route: 065

REACTIONS (9)
  - Chest pain [Unknown]
  - Choking [Unknown]
  - Dyspnoea [Unknown]
  - Illness [Unknown]
  - Oral discomfort [Unknown]
  - Oropharyngeal pain [Unknown]
  - Pneumonia [Unknown]
  - Cough [Unknown]
  - Drug ineffective [Unknown]
